FAERS Safety Report 7318739-7 (Version None)
Quarter: 2011Q1

REPORT INFORMATION
  Report Type: 
  Country: None (occurrence: None)
  Receive Date: 20110228
  Receipt Date: 20100527
  Transmission Date: 20110831
  Serious: No
  Sender: FDA-Public Use
  Company Number: A0845929A

PATIENT
  Sex: Female

DRUGS (2)
  1. GSK AUTOINJECTOR [Suspect]
  2. SUMATRIPTAN SUCCINATE [Suspect]
     Route: 058

REACTIONS (2)
  - PRODUCT QUALITY ISSUE [None]
  - DRUG ADMINISTRATION ERROR [None]
